FAERS Safety Report 16838413 (Version 1)
Quarter: 2019Q3

REPORT INFORMATION
  Report Type: Spontaneous
  Country: US (occurrence: US)
  Receive Date: 20190923
  Receipt Date: 20190923
  Transmission Date: 20191005
  Serious: Yes (Other)
  Sender: FDA-Public Use
  Company Number: US-NOVOPROD-684962

PATIENT
  Age: 61 Year
  Sex: Female

DRUGS (2)
  1. OZEMPIC [Suspect]
     Active Substance: SEMAGLUTIDE
     Dosage: 0.5 MG, QW
     Route: 058
     Dates: start: 2019
  2. OZEMPIC [Suspect]
     Active Substance: SEMAGLUTIDE
     Indication: TYPE 2 DIABETES MELLITUS
     Dosage: UNK
     Route: 058
     Dates: start: 201908, end: 2019

REACTIONS (8)
  - Malaise [Unknown]
  - Dyspnoea [Not Recovered/Not Resolved]
  - Stress [Unknown]
  - Palpitations [Unknown]
  - Glycosylated haemoglobin increased [Unknown]
  - Chest pain [Unknown]
  - Blood glucose increased [Unknown]
  - Epilepsy [Unknown]

NARRATIVE: CASE EVENT DATE: 2019
